FAERS Safety Report 25886525 (Version 1)
Quarter: 2025Q4

REPORT INFORMATION
  Report Type: Spontaneous
  Country: US (occurrence: US)
  Receive Date: 20251006
  Receipt Date: 20251006
  Transmission Date: 20260117
  Serious: No
  Sender: MERCK SHARP & DOHME LLC
  Company Number: US-009507513-2332336

PATIENT
  Sex: Female
  Weight: 73.482 kg

DRUGS (35)
  1. WINREVAIR [Suspect]
     Active Substance: SOTATERCEPT-CSRK
  2. WINREVAIR [Suspect]
     Active Substance: SOTATERCEPT-CSRK
  3. WINREVAIR [Suspect]
     Active Substance: SOTATERCEPT-CSRK
  4. WINREVAIR [Suspect]
     Active Substance: SOTATERCEPT-CSRK
  5. TYVASO DPI [Suspect]
     Active Substance: TREPROSTINIL
     Indication: Pulmonary hypertension
     Route: 055
     Dates: start: 20230712
  6. COLACE [Concomitant]
     Active Substance: DOCUSATE SODIUM
  7. OLANZAPINE [Concomitant]
     Active Substance: OLANZAPINE
  8. ALBUTEROL\IPRATROPIUM [Concomitant]
     Active Substance: ALBUTEROL\IPRATROPIUM
  9. FERROUS SULFATE [Concomitant]
     Active Substance: FERROUS SULFATE
  10. MIRALAX [Concomitant]
     Active Substance: POLYETHYLENE GLYCOL 3350
  11. ELIQUIS [Concomitant]
     Active Substance: APIXABAN
  12. IMODIUM A-D [Concomitant]
     Active Substance: LOPERAMIDE HYDROCHLORIDE
  13. TYLENOL [Concomitant]
     Active Substance: ACETAMINOPHEN
  14. VIOKACE [Concomitant]
     Active Substance: PANCRELIPASE AMYLASE\PANCRELIPASE LIPASE\PANCRELIPASE PROTEASE
  15. JARDIANCE [Concomitant]
     Active Substance: EMPAGLIFLOZIN
  16. OFEV [Concomitant]
     Active Substance: NINTEDANIB
  17. LEXAPRO [Concomitant]
     Active Substance: ESCITALOPRAM OXALATE
  18. ALBUTEROL SULFATE [Concomitant]
     Active Substance: ALBUTEROL SULFATE
  19. ONDANSETRON HYDROCHLORIDE [Concomitant]
     Active Substance: ONDANSETRON HYDROCHLORIDE
  20. SODIUM CHLORIDE [Concomitant]
     Active Substance: SODIUM CHLORIDE
  21. PROMETHAZINE DM [Concomitant]
     Active Substance: DEXTROMETHORPHAN HYDROBROMIDE\PROMETHAZINE HYDROCHLORIDE
  22. SPIRONOLACTONE [Concomitant]
     Active Substance: SPIRONOLACTONE
  23. REVATIO [Concomitant]
     Active Substance: SILDENAFIL CITRATE
  24. SENOKOT [Concomitant]
     Active Substance: SENNOSIDES
  25. PREDNISONE [Concomitant]
     Active Substance: PREDNISONE
  26. OXYGEN [Concomitant]
     Active Substance: OXYGEN
  27. OMEPRAZOLE [Concomitant]
     Active Substance: OMEPRAZOLE
  28. INSULIN LISPRO [Concomitant]
     Active Substance: INSULIN LISPRO
  29. LOVENOX [Concomitant]
     Active Substance: ENOXAPARIN SODIUM
  30. AZITHROMYCIN [Concomitant]
     Active Substance: AZITHROMYCIN
  31. ZYRTEC [Concomitant]
     Active Substance: CETIRIZINE HYDROCHLORIDE
  32. LOPERAMIDE [Concomitant]
     Active Substance: LOPERAMIDE
  33. LORATADINE [Concomitant]
     Active Substance: LORATADINE
  34. ROBITUSSIN COUGH AND CHEST CONGESTION DM [Concomitant]
     Active Substance: DEXTROMETHORPHAN HYDROBROMIDE\GUAIFENESIN
  35. SODIUM BICARBONATE [Concomitant]
     Active Substance: SODIUM BICARBONATE

REACTIONS (4)
  - Neck pain [Unknown]
  - Back pain [Unknown]
  - Headache [Unknown]
  - Pain [Unknown]
